FAERS Safety Report 9288390 (Version 1)
Quarter: 2013Q2

REPORT INFORMATION
  Report Type: Spontaneous
  Country: US (occurrence: None)
  Receive Date: 20130513
  Receipt Date: 20130513
  Transmission Date: 20140414
  Serious: Yes (Hospitalization)
  Sender: FDA-Public Use
  Company Number: None

PATIENT
  Age: 54 Year
  Sex: Male
  Weight: 215 kg

DRUGS (1)
  1. LABETALOL [Suspect]
     Indication: ESSENTIAL HYPERTENSION
     Dosage: 100MG 2 TABS TID PO
     Dates: start: 20120801, end: 20130503

REACTIONS (2)
  - Dyspnoea [None]
  - Fatigue [None]
